FAERS Safety Report 20785070 (Version 1)
Quarter: 2022Q2

REPORT INFORMATION
  Report Type: Spontaneous
  Country: US (occurrence: None)
  Receive Date: 20220503
  Receipt Date: 20220503
  Transmission Date: 20220720
  Serious: Yes (Other)
  Sender: FDA-Public Use
  Company Number: None

PATIENT
  Age: 45 Year
  Sex: Female
  Weight: 61.65 kg

DRUGS (1)
  1. OXYCODONE [Suspect]
     Active Substance: OXYCODONE
     Indication: Pain
     Route: 048

REACTIONS (4)
  - Product dosage form issue [None]
  - Drug ineffective [None]
  - Product dispensing error [None]
  - Wrong product administered [None]

NARRATIVE: CASE EVENT DATE: 20220101
